FAERS Safety Report 18881411 (Version 1)
Quarter: 2021Q1

REPORT INFORMATION
  Report Type: Spontaneous
  Country: TN (occurrence: TN)
  Receive Date: 20210212
  Receipt Date: 20210212
  Transmission Date: 20210420
  Serious: Yes (Other)
  Sender: FDA-Public Use
  Company Number: TN-LUPIN PHARMACEUTICALS INC.-2021-01535

PATIENT
  Age: 52 Year
  Sex: Female

DRUGS (2)
  1. HYDROXYCHLOROQUINE [Suspect]
     Active Substance: HYDROXYCHLOROQUINE
     Indication: SJOGREN^S SYNDROME
     Dosage: UNK, PLACED ON HYDROXYCHLOROQUINE FOR 2 MONTHS, BUT BY MISTAKE, RECEIVED CLOPIDOGREL FOR A WEEK.
     Route: 065
  2. CLOPIDOGREL [Suspect]
     Active Substance: CLOPIDOGREL BISULFATE
     Indication: PRODUCT USED FOR UNKNOWN INDICATION
     Dosage: UNK, PLACED ON HYDROXYCHLOROQUINE FOR 2 MONTHS, BUT BY MISTAKE, RECEIVED CLOPIDOGREL FOR A WEEK.
     Route: 065

REACTIONS (1)
  - Wrong product administered [Unknown]
